FAERS Safety Report 15678788 (Version 1)
Quarter: 2018Q4

REPORT INFORMATION
  Report Type: Spontaneous
  Country: RO (occurrence: RO)
  Receive Date: 20181202
  Receipt Date: 20181202
  Transmission Date: 20190205
  Serious: Yes (Death, Hospitalization)
  Sender: FDA-Public Use
  Company Number: RO-ASTRAZENECA-2018SF57335

PATIENT
  Age: 61 Year
  Sex: Male

DRUGS (13)
  1. TERTENSIF [Concomitant]
     Active Substance: INDAPAMIDE
  2. BRILIQUE [Suspect]
     Active Substance: TICAGRELOR
     Indication: ACUTE MYOCARDIAL INFARCTION
     Route: 048
     Dates: start: 20180209
  3. ASA [Concomitant]
     Active Substance: ASPIRIN
  4. CARVEDILOL. [Concomitant]
     Active Substance: CARVEDILOL
  5. SORTIS [Concomitant]
     Active Substance: ATORVASTATIN
  6. ASPENTER [Concomitant]
     Active Substance: ASPIRIN
  7. CORDARONE [Concomitant]
     Active Substance: AMIODARONE HYDROCHLORIDE
  8. METFORMIN [Concomitant]
     Active Substance: METFORMIN HYDROCHLORIDE
  9. INSULIN [Concomitant]
     Active Substance: INSULIN NOS
  10. SPIRONOLACTONE. [Concomitant]
     Active Substance: SPIRONOLACTONE
  11. TRITACE [Concomitant]
     Active Substance: RAMIPRIL
  12. NORVASC [Concomitant]
     Active Substance: AMLODIPINE BESYLATE
  13. OMEZ [Concomitant]
     Active Substance: OMEPRAZOLE

REACTIONS (3)
  - Coma [Unknown]
  - Cerebrovascular accident [Unknown]
  - Death [Fatal]

NARRATIVE: CASE EVENT DATE: 20181115
